FAERS Safety Report 8160253-3 (Version None)
Quarter: 2012Q1

REPORT INFORMATION
  Report Type: 
  Country: None (occurrence: None)
  Receive Date: 20120223
  Receipt Date: 20120221
  Transmission Date: 20120608
  Serious: Yes (Death, Hospitalization, Other)
  Sender: FDA-Public Use
  Company Number: US-B.I. PHARMACEUTICALS,INC./RIDGEFIELD-2012-BP-03323BP

PATIENT
  Age: 89 Year
  Sex: Male

DRUGS (6)
  1. ACETAMINOPHEN [Concomitant]
  2. PROTONIX [Concomitant]
  3. REMERON [Concomitant]
  4. CEREBREX [Concomitant]
  5. PRADAXA [Suspect]
     Indication: ATRIAL FIBRILLATION
     Dosage: 300 MG
     Route: 048
     Dates: start: 20110401, end: 20110501
  6. FLUDROCORTISONE ACETATE [Concomitant]

REACTIONS (6)
  - BACTERAEMIA [None]
  - DYSPHAGIA [None]
  - PNEUMONIA [None]
  - UROSEPSIS [None]
  - HEMIPARESIS [None]
  - CEREBROVASCULAR ACCIDENT [None]
